FAERS Safety Report 5593978-4 (Version None)
Quarter: 2007Q4

REPORT INFORMATION
  Report Type: 
  Country: None (occurrence: None)
  Receive Date: 20071218
  Receipt Date: 20070503
  Transmission Date: 20080405
  Serious: Yes (Hospitalization, Disabling, Other)
  Sender: FDA-Public Use
  Company Number: 2007035903

PATIENT
  Age: 51 Year
  Sex: Female
  Weight: 77.1 kg

DRUGS (1)
  1. BEXTRA [Suspect]
     Indication: FIBROMYALGIA
     Dosage: 20 MG (10 MG,2 IN 1 D)
     Dates: start: 20030101

REACTIONS (3)
  - ANXIETY [None]
  - DEPRESSION [None]
  - MYOCARDIAL INFARCTION [None]
